FAERS Safety Report 4832231-0 (Version None)
Quarter: 2005Q4

REPORT INFORMATION
  Report Type: 
  Country: None (occurrence: None)
  Receive Date: 20051118
  Receipt Date: 20051108
  Transmission Date: 20060501
  Serious: Yes (Disabling)
  Sender: FDA-Public Use
  Company Number: MY-MERCK-0511MYS00002

PATIENT
  Age: 47 Year
  Sex: Female

DRUGS (8)
  1. VYTORIN [Suspect]
     Indication: HYPERCHOLESTEROLAEMIA
     Route: 048
     Dates: start: 20050101, end: 20050101
  2. TICLOPIDINE HYDROCHLORIDE [Concomitant]
     Route: 048
     Dates: start: 20010101
  3. HYDROCHLOROTHIAZIDE AND VALSARTAN [Concomitant]
     Route: 048
     Dates: start: 20010101
  4. ATORVASTATIN CALCIUM [Concomitant]
     Indication: HYPERCHOLESTEROLAEMIA
     Route: 065
     Dates: end: 20050101
  5. ATORVASTATIN CALCIUM [Concomitant]
     Route: 065
     Dates: start: 20051101
  6. ZETIA [Concomitant]
     Indication: HYPERCHOLESTEROLAEMIA
     Route: 065
     Dates: end: 20050101
  7. ZETIA [Concomitant]
     Route: 065
     Dates: start: 20051101
  8. VITAMINS (UNSPECIFIED) [Concomitant]
     Route: 065

REACTIONS (2)
  - BONE PAIN [None]
  - MUSCLE SPASMS [None]
